FAERS Safety Report 4323414-7 (Version None)
Quarter: 2004Q1

REPORT INFORMATION
  Report Type: 
  Country: None (occurrence: None)
  Receive Date: 20040325
  Receipt Date: 20040322
  Transmission Date: 20041129
  Serious: Yes (Hospitalization)
  Sender: FDA-Public Use
  Company Number: FR-GLAXOSMITHKLINE-B0327418A

PATIENT
  Age: 81 Year
  Sex: Male
  Weight: 71 kg

DRUGS (4)
  1. AMOXICILLIN [Suspect]
     Indication: PNEUMONIA BACTERIAL
     Dosage: 1G PER DAY
     Route: 042
     Dates: start: 20040205, end: 20040213
  2. OFLOCET [Suspect]
     Indication: PNEUMONIA BACTERIAL
     Dosage: 200MG PER DAY
     Route: 048
     Dates: start: 20040205, end: 20040213
  3. NOVONORM [Concomitant]
     Indication: DIABETES MELLITUS
     Dosage: 3MG PER DAY
     Route: 048
     Dates: start: 20040207, end: 20040213
  4. LASIX [Concomitant]
     Dosage: 40MG PER DAY
     Route: 048
     Dates: start: 20040207, end: 20040213

REACTIONS (6)
  - CULTURE STOOL POSITIVE [None]
  - DEHYDRATION [None]
  - DIARRHOEA [None]
  - RENAL FAILURE [None]
  - STAPHYLOCOCCAL INFECTION [None]
  - VOMITING [None]
